FAERS Safety Report 23305564 (Version 1)
Quarter: 2023Q4

REPORT INFORMATION
  Report Type: Spontaneous
  Country: US (occurrence: US)
  Receive Date: 20231218
  Receipt Date: 20231218
  Transmission Date: 20240109
  Serious: No
  Sender: FDA-Public Use
  Company Number: US-BRISTOL-MYERS SQUIBB COMPANY-2023-181479

PATIENT
  Age: 63 Year
  Sex: Male

DRUGS (1)
  1. THALOMID [Suspect]
     Active Substance: THALIDOMIDE
     Indication: Pulmonary fibrosis
     Route: 048

REACTIONS (2)
  - Paraesthesia [Unknown]
  - Off label use [Unknown]
